FAERS Safety Report 9299268 (Version 2)
Quarter: 2013Q2

REPORT INFORMATION
  Report Type: Spontaneous
  Country: PH (occurrence: PH)
  Receive Date: 20130520
  Receipt Date: 20130527
  Transmission Date: 20140414
  Serious: Yes (Death, Other)
  Sender: FDA-Public Use
  Company Number: PH-009507513-1305PHL010689

PATIENT
  Age: 91 Year
  Sex: Female

DRUGS (1)
  1. JANUVIA [Suspect]
     Dosage: 1 TABLET (THOUGH 100 MG), ONCE A DAY
     Route: 048
     Dates: end: 201304

REACTIONS (1)
  - Myocardial infarction [Fatal]
